FAERS Safety Report 7017323-2 (Version None)
Quarter: 2010Q3

REPORT INFORMATION
  Report Type: 
  Country: None (occurrence: None)
  Receive Date: 20100928
  Receipt Date: 20100922
  Transmission Date: 20110219
  Serious: No
  Sender: FDA-Public Use
  Company Number: US-BIOGENIDEC-2010BI032720

PATIENT
  Sex: Female

DRUGS (2)
  1. AVONEX [Suspect]
     Indication: MULTIPLE SCLEROSIS
     Route: 030
     Dates: start: 20061201
  2. PROZAC [Concomitant]
     Indication: DEPRESSION

REACTIONS (10)
  - ASTHENIA [None]
  - CRYING [None]
  - DECREASED INTEREST [None]
  - EAR INFECTION [None]
  - EAR PAIN [None]
  - EYE IRRITATION [None]
  - FEELING HOT [None]
  - MULTIPLE ALLERGIES [None]
  - PHARYNGITIS [None]
  - RASH MACULAR [None]
